FAERS Safety Report 24793172 (Version 1)
Quarter: 2024Q4

REPORT INFORMATION
  Report Type: Spontaneous
  Country: TW (occurrence: TW)
  Receive Date: 20241231
  Receipt Date: 20241231
  Transmission Date: 20250115
  Serious: Yes (Death)
  Sender: GLAND PHARMA LTD
  Company Number: TW-GLANDPHARMA-TW-2024GLNLIT01319

PATIENT
  Sex: Male
  Weight: 1.68 kg

DRUGS (9)
  1. MEROPENEM [Suspect]
     Active Substance: MEROPENEM
     Indication: Staphylococcal scalded skin syndrome
     Route: 065
  2. MEROPENEM [Suspect]
     Active Substance: MEROPENEM
     Indication: Prophylaxis
  3. OXACILLIN [Suspect]
     Active Substance: OXACILLIN SODIUM
     Indication: Staphylococcal scalded skin syndrome
     Route: 065
  4. OXACILLIN [Suspect]
     Active Substance: OXACILLIN SODIUM
     Indication: Prophylaxis
  5. CLINDAMYCIN [Suspect]
     Active Substance: CLINDAMYCIN
     Indication: Staphylococcal scalded skin syndrome
     Route: 065
  6. CLINDAMYCIN [Suspect]
     Active Substance: CLINDAMYCIN
     Indication: Prophylaxis
  7. GENTAMICIN [Suspect]
     Active Substance: GENTAMICIN
     Indication: Staphylococcal scalded skin syndrome
     Route: 065
  8. PETROLEUM JELLY [Concomitant]
     Active Substance: PETROLATUM
     Indication: Staphylococcal scalded skin syndrome
     Route: 065
  9. EPINEPHRINE [Concomitant]
     Active Substance: EPINEPHRINE
     Indication: Respiratory failure
     Route: 065

REACTIONS (2)
  - Candida infection [Fatal]
  - Product use issue [Unknown]
